FAERS Safety Report 8021433-0 (Version None)
Quarter: 2012Q1

REPORT INFORMATION
  Report Type: 
  Country: None (occurrence: None)
  Receive Date: 20120104
  Receipt Date: 20111229
  Transmission Date: 20120608
  Serious: Yes (Hospitalization)
  Sender: FDA-Public Use
  Company Number: FR-ASTELLAS-2011EU009617

PATIENT
  Age: 15 Year
  Sex: Female

DRUGS (3)
  1. PROGRAF [Suspect]
     Dosage: 3 MG, BID
     Route: 048
     Dates: start: 20080301, end: 20111129
  2. PREDNISONE TAB [Concomitant]
     Dosage: UNK
     Route: 065
  3. MYCOPHENOLATE MOFETIL (CELLCEPT) [Suspect]
     Dosage: 1 G, BID
     Route: 048
     Dates: start: 20080601, end: 20111125

REACTIONS (3)
  - DIARRHOEA [None]
  - INTUSSUSCEPTION [None]
  - ABDOMINAL PAIN [None]
